FAERS Safety Report 21155602 (Version 2)
Quarter: 2022Q3

REPORT INFORMATION
  Report Type: Report from Study
  Country: IT (occurrence: IT)
  Receive Date: 20220801
  Receipt Date: 20220805
  Transmission Date: 20221026
  Serious: Yes (Other)
  Sender: FDA-Public Use
  Company Number: IT-GILEAD-2022-0578899

PATIENT
  Sex: Female
  Weight: 53 kg

DRUGS (1)
  1. SACITUZUMAB GOVITECAN [Suspect]
     Active Substance: SACITUZUMAB GOVITECAN
     Indication: Product used for unknown indication
     Dosage: 10 MG/KG
     Route: 042
     Dates: start: 20220126, end: 20220714

REACTIONS (3)
  - Disease progression [Unknown]
  - Alopecia [Unknown]
  - Drug ineffective [Unknown]
